FAERS Safety Report 13988432 (Version 1)
Quarter: 2017Q3

REPORT INFORMATION
  Report Type: Spontaneous
  Country: GB (occurrence: GB)
  Receive Date: 20170919
  Receipt Date: 20170919
  Transmission Date: 20171128
  Serious: Yes (Other)
  Sender: FDA-Public Use
  Company Number: GB-BAUSCH-BL-2017-027189

PATIENT
  Age: 14 Year
  Sex: Male

DRUGS (1)
  1. SODIUM CROMOGLYCATE [Suspect]
     Active Substance: CROMOLYN SODIUM
     Indication: SEASONAL ALLERGY
     Route: 047
     Dates: start: 20170701, end: 20170701

REACTIONS (3)
  - Eye irritation [Recovered/Resolved]
  - Eye swelling [Recovered/Resolved]
  - Reaction to excipient [Recovered/Resolved]

NARRATIVE: CASE EVENT DATE: 20170701
